FAERS Safety Report 13464920 (Version 1)
Quarter: 2017Q2

REPORT INFORMATION
  Report Type: Spontaneous
  Country: RU (occurrence: RU)
  Receive Date: 20170420
  Receipt Date: 20170420
  Transmission Date: 20170830
  Serious: Yes (Hospitalization)
  Sender: FDA-Public Use
  Company Number: RU-ASTRAZENECA-2017SE40288

PATIENT
  Age: 81 Year
  Sex: Female
  Weight: 80 kg

DRUGS (10)
  1. PREDUCTAL [Concomitant]
     Active Substance: TRIMETAZIDINE DIHYDROCHLORIDE
     Dosage: 1 TABLET IN THE EVENING
  2. LORISTA [Concomitant]
     Active Substance: LOSARTAN POTASSIUM
  3. METOPROLOL. [Concomitant]
     Active Substance: METOPROLOL
  4. METFORMIN [Concomitant]
     Active Substance: METFORMIN HYDROCHLORIDE
  5. ROSUVASTATIN. [Concomitant]
     Active Substance: ROSUVASTATIN
     Dosage: 1 TABLET IN THE EVENING
  6. VEROSPIRON [Concomitant]
     Active Substance: SPIRONOLACTONE
  7. ACECARDOL [Concomitant]
     Active Substance: ASPIRIN
     Dosage: 1 TABLET IN THE EVENING
  8. BRILINTA [Suspect]
     Active Substance: TICAGRELOR
     Indication: MYOCARDIAL INFARCTION
     Route: 048
     Dates: start: 20170119
  9. L-THYROXIN [Concomitant]
     Active Substance: LEVOTHYROXINE SODIUM
  10. AMLODIPINE [Concomitant]
     Active Substance: AMLODIPINE BESYLATE
     Dosage: 5 MG IN THE EVENING

REACTIONS (2)
  - Angina pectoris [Recovered/Resolved]
  - Contusion [Not Recovered/Not Resolved]

NARRATIVE: CASE EVENT DATE: 20170227
